FAERS Safety Report 12985803 (Version 4)
Quarter: 2017Q1

REPORT INFORMATION
  Report Type: Spontaneous
  Country: US (occurrence: US)
  Receive Date: 20161130
  Receipt Date: 20170124
  Transmission Date: 20170428
  Serious: Yes (Death, Hospitalization, Other)
  Sender: FDA-Public Use
  Company Number: US-009507513-1611USA011543

PATIENT
  Age: 73 Year
  Sex: Male
  Weight: 88.89 kg

DRUGS (14)
  1. COLACE [Concomitant]
     Active Substance: DOCUSATE SODIUM
     Dosage: 100 MG, BID
     Route: 048
     Dates: start: 20151215
  2. FOLIC ACID (+) IRON (UNSPECIFIED) (+) VITAMIN B (UNSPECIFIED) [Concomitant]
     Dosage: 1 DF, QD
     Route: 048
  3. KEYTRUDA [Suspect]
     Active Substance: PEMBROLIZUMAB
     Indication: PANCREATIC CARCINOMA METASTATIC
  4. MIRALAX [Concomitant]
     Active Substance: POLYETHYLENE GLYCOL 3350
     Indication: CONSTIPATION
     Dosage: 17 G, PRN, DAILY
     Route: 048
     Dates: start: 20151215
  5. TUMS [Concomitant]
     Active Substance: CALCIUM CARBONATE
     Dosage: 2 TABLETS 3 TIMES DAILY
     Route: 048
  6. DURAGESIC [Concomitant]
     Active Substance: FENTANYL
     Dosage: 75 MICROGRAM, QH, APPLY 1 PATCH EVERY 72 HOURS
     Route: 061
     Dates: start: 20151215
  7. FLONASE [Concomitant]
     Active Substance: FLUTICASONE PROPIONATE
     Dosage: 1 SPRAY EACH NOSTRIL DAILY
     Route: 045
  8. AMARYL [Concomitant]
     Active Substance: GLIMEPIRIDE
     Indication: DIABETES MELLITUS
     Dosage: 2 MG, 2 TABS BID
     Route: 048
  9. KEYTRUDA [Suspect]
     Active Substance: PEMBROLIZUMAB
     Indication: METASTATIC MALIGNANT MELANOMA
     Dosage: UNK UNK, Q3W
     Route: 042
     Dates: start: 20160824, end: 20160929
  10. DILAUDID [Concomitant]
     Active Substance: HYDROMORPHONE HYDROCHLORIDE
     Indication: BREAKTHROUGH PAIN
     Dosage: 8 MG, PRN, Q4H
     Route: 048
     Dates: start: 20151215
  11. GLUCOPHAGE [Concomitant]
     Active Substance: METFORMIN HYDROCHLORIDE
     Indication: DIABETES MELLITUS
     Dosage: 1000 MG, BID, WITH MEALS
     Route: 048
  12. CYANOCOBALAMIN. [Concomitant]
     Active Substance: CYANOCOBALAMIN
     Dosage: 1000 MICROGRAM, QD
     Route: 048
  13. REGLAN [Concomitant]
     Active Substance: METOCLOPRAMIDE HYDROCHLORIDE
     Dosage: 5 MG, TID
     Route: 048
     Dates: start: 20151110
  14. SENOKOT (SENNOSIDES) [Concomitant]
     Dosage: 8.6 MG, BID
     Route: 048

REACTIONS (5)
  - Malignant neoplasm progression [Unknown]
  - Death [Fatal]
  - Confusional state [Unknown]
  - Obstruction gastric [Unknown]
  - Dyspnoea [Recovering/Resolving]

NARRATIVE: CASE EVENT DATE: 2016
